FAERS Safety Report 9684711 (Version 1)
Quarter: 2013Q4

REPORT INFORMATION
  Report Type: Spontaneous
  Country: US (occurrence: None)
  Receive Date: 20131108
  Receipt Date: 20131108
  Transmission Date: 20140711
  Serious: Yes (Hospitalization)
  Sender: FDA-Public Use
  Company Number: 2013P1020651

PATIENT
  Age: 70 Year
  Sex: Female

DRUGS (2)
  1. PYRIDOSTIGMINE [Suspect]
     Indication: MYASTHENIA GRAVIS
     Route: 048
  2. METHYLPREDNISOLONE [Concomitant]

REACTIONS (2)
  - Sinoatrial block [None]
  - Bradycardia [None]
